FAERS Safety Report 7022678-9 (Version None)
Quarter: 2010Q3

REPORT INFORMATION
  Report Type: 
  Country: None (occurrence: None)
  Receive Date: 20100930
  Receipt Date: 20100927
  Transmission Date: 20110219
  Serious: Yes (Hospitalization)
  Sender: FDA-Public Use
  Company Number: A0755319A

PATIENT
  Age: 59 Year
  Sex: Female
  Weight: 81.8 kg

DRUGS (2)
  1. AVANDIA [Suspect]
     Dosage: 4MG PER DAY
     Route: 048
     Dates: start: 20020101, end: 20050501
  2. AVANDARYL [Suspect]
     Route: 048
     Dates: start: 20050101, end: 20080901

REACTIONS (1)
  - MYOCARDIAL INFARCTION [None]
